FAERS Safety Report 7786951-9 (Version None)
Quarter: 2011Q3

REPORT INFORMATION
  Report Type: 
  Country: None (occurrence: None)
  Receive Date: 20110928
  Receipt Date: 20110928
  Transmission Date: 20111222
  Serious: Yes (Life-Threatening, Hospitalization)
  Sender: FDA-Public Use
  Company Number: None

PATIENT
  Age: 63 Year
  Sex: Male
  Weight: 131.5 kg

DRUGS (1)
  1. LISINOPRIL [Suspect]
     Indication: HYPERTENSION
     Dosage: 10 MG EVERY DAY PO
     Route: 048
     Dates: start: 20110212, end: 20110429

REACTIONS (6)
  - LIP SWELLING [None]
  - RESPIRATORY TRACT OEDEMA [None]
  - DYSPNOEA [None]
  - ANGIOEDEMA [None]
  - SWELLING FACE [None]
  - MIDDLE INSOMNIA [None]
